FAERS Safety Report 19003960 (Version 14)
Quarter: 2021Q4

REPORT INFORMATION
  Report Type: Report from Study
  Country: NL (occurrence: NL)
  Receive Date: 20210313
  Receipt Date: 20211202
  Transmission Date: 20220303
  Serious: Yes (Hospitalization, Other)
  Sender: FDA-Public Use
  Company Number: NL-ABBVIE-21K-114-3763348-00

PATIENT
  Age: 77 Year
  Sex: Male

DRUGS (33)
  1. CARBIDOPA\LEVODOPA [Suspect]
     Active Substance: CARBIDOPA\LEVODOPA
     Indication: Parkinson^s disease
     Dosage: MD: 8.0 ML, CD: 2.6 ML/H, ED: 2.0 ML
     Route: 050
  2. CARBIDOPA\LEVODOPA [Suspect]
     Active Substance: CARBIDOPA\LEVODOPA
     Dosage: MD: 9.0 ML, CD: 2.9 ML/H, ED: 2.0 ML
     Route: 050
  3. CARBIDOPA\LEVODOPA [Suspect]
     Active Substance: CARBIDOPA\LEVODOPA
     Dosage: MD: 11.5 ML, CD: 2.9 ML/H, ED: 2.0 ML; ADDITIONAL TUBE FILING 2.5 ML
     Route: 050
  4. CARBIDOPA\LEVODOPA [Suspect]
     Active Substance: CARBIDOPA\LEVODOPA
     Dosage: MD: 11.5 ML, CD: 2.9 ML/H, ED: 2.0 ML; ADDITIONAL TUBE FILING 2.5 ML
     Route: 050
  5. CARBIDOPA\LEVODOPA [Suspect]
     Active Substance: CARBIDOPA\LEVODOPA
     Dosage: MD: 11.1 ML, CD: 3.1 ML/H, ED: 2.0 ML
     Route: 050
  6. CARBIDOPA\LEVODOPA [Suspect]
     Active Substance: CARBIDOPA\LEVODOPA
     Dosage: MD: 12.5 ML, CD: 3.1 ML/H, ED: 2.0 ML, REMAINS AT 16 HOURS
     Route: 050
  7. CARBIDOPA\LEVODOPA [Suspect]
     Active Substance: CARBIDOPA\LEVODOPA
     Dosage: MD: 12.5 ML, CD: 3.3 ML/H, ED: 2.0 ML
     Route: 050
  8. CARBIDOPA\LEVODOPA [Suspect]
     Active Substance: CARBIDOPA\LEVODOPA
     Dosage: MD: 12.5 ML; CD: 3.7 ML/H; ED: 2.0 ML
     Route: 050
  9. CARBIDOPA\LEVODOPA [Suspect]
     Active Substance: CARBIDOPA\LEVODOPA
     Dosage: MD: 12.5 ML, CD: 3.3 ML/H, ED: 2.0 ML
     Route: 050
  10. CLONAZEPAM [Concomitant]
     Active Substance: CLONAZEPAM
     Indication: Product used for unknown indication
     Dosage: 1 TIME 2 TABLETS AT 9 PM
  11. CARBIDOPA\LEVODOPA [Concomitant]
     Active Substance: CARBIDOPA\LEVODOPA
     Indication: Product used for unknown indication
     Dosage: 100/25 MG, 1 TIME 2 TABLETS FOR NIGHT
  12. ISOSORBIDE MONONITRATE [Concomitant]
     Active Substance: ISOSORBIDE MONONITRATE
     Indication: Product used for unknown indication
     Dosage: 1 TIME 1 AT 8 AM
  13. PANTOPRAZOLE SODIUM [Concomitant]
     Active Substance: PANTOPRAZOLE SODIUM
     Indication: Product used for unknown indication
     Dosage: 1 TIMES 2 AT 8 AM
  14. QUETIAPINE [Concomitant]
     Active Substance: QUETIAPINE
     Indication: Product used for unknown indication
     Dosage: 1 TIME 1 FOR NIGHT
  15. SINEMET [Concomitant]
     Active Substance: CARBIDOPA\LEVODOPA
     Indication: Product used for unknown indication
     Dosage: 4 TIMES 1 AT 8-12-17-21
  16. SOLIFENACIN [Concomitant]
     Active Substance: SOLIFENACIN
     Indication: Product used for unknown indication
     Dosage: 1 TIMES 1 AT 8 AM
  17. STALEVO [Concomitant]
     Active Substance: CARBIDOPA\ENTACAPONE\LEVODOPA
     Indication: Product used for unknown indication
     Dosage: 100/25/200 MG, 4 TIME 1 AT 8,12,17, 21
  18. VERAPAMIL [Concomitant]
     Active Substance: VERAPAMIL HYDROCHLORIDE
     Indication: Product used for unknown indication
     Dosage: AT 08:00 AM
  19. ACENOCOUMAROL [Concomitant]
     Active Substance: ACENOCOUMAROL
     Indication: Product used for unknown indication
  20. CITALOPRAM [Concomitant]
     Active Substance: CITALOPRAM HYDROBROMIDE
     Indication: Product used for unknown indication
  21. CLOBETASOL PROPIONATE [Concomitant]
     Active Substance: CLOBETASOL PROPIONATE
     Indication: Pain
     Dosage: 0.5 MG/G?CLOBTASOL-PROP CR
  22. POLYETHYLENE GLYCOL 4000 [Concomitant]
     Active Substance: POLYETHYLENE GLYCOL 4000
     Indication: Product used for unknown indication
  23. LOPROX [Concomitant]
     Active Substance: CICLOPIROX\CICLOPIROX OLAMINE
     Indication: Product used for unknown indication
     Dosage: 10MG/G
  24. MADOPAR DISPERSIBLE [Concomitant]
     Indication: Product used for unknown indication
     Dosage: 1 TIME 1 IF NECESSARY EXTRA FOR THE NIGHT
  25. MAGNESIUM HYDROXIDE [Concomitant]
     Active Substance: MAGNESIUM HYDROXIDE
     Indication: Product used for unknown indication
     Dosage: AT 8,12,17
  26. RIVASTIGMINE [Concomitant]
     Active Substance: RIVASTIGMINE
     Indication: Product used for unknown indication
  27. APOMORPHINE [Concomitant]
     Active Substance: APOMORPHINE
     Indication: Product used for unknown indication
     Dosage: DAY AND NIGHT
     Dates: end: 20210128
  28. DOMPERIDONE [Concomitant]
     Active Substance: DOMPERIDONE
     Indication: Product used for unknown indication
     Dosage: IF NECESSARY
  29. GLYCOSAMINOGLYCANS [Concomitant]
     Active Substance: GLYCOSAMINOGLYCANS
     Indication: Product used for unknown indication
     Dosage: ONCE OR TWICE A DAY IF NECESSARY
  30. ISOSORBIDE [Concomitant]
     Active Substance: ISOSORBIDE
     Indication: Chest pain
     Dosage: WHEN HAVING CHEST PAIN IF NECESSARY
  31. ISOSORBIDE MONONITRATE [Concomitant]
     Active Substance: ISOSORBIDE MONONITRATE
     Indication: Product used for unknown indication
     Dosage: IF NECESSARY
  32. NITROGLYCERIN [Concomitant]
     Active Substance: NITROGLYCERIN
     Indication: Chest pain
     Dosage: SPRAY 0.4 MG PER DAY 200D WITH PAIN AT THE CHEST
  33. ISOSORBIDE MONONITE [Concomitant]
     Indication: Product used for unknown indication

REACTIONS (86)
  - Depressed level of consciousness [Recovered/Resolved]
  - Hospitalisation [Unknown]
  - Loss of personal independence in daily activities [Recovering/Resolving]
  - Gastrointestinal disorder [Unknown]
  - Medical device discomfort [Not Recovered/Not Resolved]
  - Back disorder [Not Recovered/Not Resolved]
  - Medical device site pain [Recovered/Resolved]
  - Memory impairment [Recovered/Resolved]
  - Mobility decreased [Not Recovered/Not Resolved]
  - Joint injury [Not Recovered/Not Resolved]
  - Psychomotor hyperactivity [Not Recovered/Not Resolved]
  - Medical device site pain [Recovering/Resolving]
  - Memory impairment [Not Recovered/Not Resolved]
  - Speech disorder [Recovering/Resolving]
  - Night sweats [Not Recovered/Not Resolved]
  - Parkinsonian gait [Not Recovered/Not Resolved]
  - Feeling abnormal [Unknown]
  - Depressed mood [Recovered/Resolved]
  - Restless legs syndrome [Not Recovered/Not Resolved]
  - Mood swings [Not Recovered/Not Resolved]
  - Underdose [Recovering/Resolving]
  - Decreased activity [Recovering/Resolving]
  - Eructation [Not Recovered/Not Resolved]
  - Muscle rigidity [Not Recovered/Not Resolved]
  - Pain in extremity [Recovering/Resolving]
  - Loss of personal independence in daily activities [Recovering/Resolving]
  - Device difficult to use [Unknown]
  - Mobility decreased [Not Recovered/Not Resolved]
  - Neurological examination abnormal [Not Recovered/Not Resolved]
  - Arthralgia [Not Recovered/Not Resolved]
  - Back pain [Not Recovered/Not Resolved]
  - Affective disorder [Not Recovered/Not Resolved]
  - Gait disturbance [Not Recovered/Not Resolved]
  - Urinary incontinence [Not Recovered/Not Resolved]
  - Asthenia [Recovering/Resolving]
  - Arrhythmia [Not Recovered/Not Resolved]
  - Fatigue [Not Recovered/Not Resolved]
  - Dysphagia [Not Recovered/Not Resolved]
  - Dyspnoea [Not Recovered/Not Resolved]
  - Decreased appetite [Recovering/Resolving]
  - Urinary retention [Recovered/Resolved]
  - Malaise [Not Recovered/Not Resolved]
  - Dyspnoea [Not Recovered/Not Resolved]
  - Gait disturbance [Not Recovered/Not Resolved]
  - Tremor [Not Recovered/Not Resolved]
  - Muscle spasms [Not Recovered/Not Resolved]
  - Abdominal pain [Recovering/Resolving]
  - Disorientation [Recovered/Resolved]
  - Constipation [Recovered/Resolved]
  - Abdominal discomfort [Recovering/Resolving]
  - Stoma site pain [Not Recovered/Not Resolved]
  - Stoma site pain [Recovered/Resolved]
  - Stoma site induration [Recovered/Resolved]
  - Disorientation [Not Recovered/Not Resolved]
  - Sleep disorder [Not Recovered/Not Resolved]
  - Somnolence [Not Recovered/Not Resolved]
  - Movement disorder [Unknown]
  - Depression [Recovering/Resolving]
  - Pain [Not Recovered/Not Resolved]
  - Abdominal distension [Not Recovered/Not Resolved]
  - Vomiting [Recovered/Resolved]
  - Nausea [Recovered/Resolved]
  - Nausea [Recovered/Resolved]
  - Bradykinesia [Unknown]
  - Freezing phenomenon [Not Recovered/Not Resolved]
  - On and off phenomenon [Not Recovered/Not Resolved]
  - Stoma site erythema [Unknown]
  - Therapeutic product effect incomplete [Recovered/Resolved]
  - Therapeutic product effect decreased [Recovering/Resolving]
  - Therapeutic product effect incomplete [Recovering/Resolving]
  - Parkinson^s disease [Unknown]
  - Unevaluable event [Not Recovered/Not Resolved]
  - Device issue [Unknown]
  - Depressed mood [Recovering/Resolving]
  - Frequent bowel movements [Not Recovered/Not Resolved]
  - Abnormal faeces [Recovered/Resolved]
  - Flatulence [Not Recovered/Not Resolved]
  - Gait inability [Not Recovered/Not Resolved]
  - Cardiac disorder [Not Recovered/Not Resolved]
  - Dyspepsia [Not Recovered/Not Resolved]
  - Incorrect dose administered [Not Recovered/Not Resolved]
  - Depressed mood [Not Recovered/Not Resolved]
  - Therapeutic product effect incomplete [Not Recovered/Not Resolved]
  - Dysphagia [Not Recovered/Not Resolved]
  - Medical device site dryness [Recovered/Resolved]
  - Unevaluable event [Not Recovered/Not Resolved]

NARRATIVE: CASE EVENT DATE: 20210203
